FAERS Safety Report 6997954-6 (Version None)
Quarter: 2010Q3

REPORT INFORMATION
  Report Type: 
  Country: None (occurrence: None)
  Receive Date: 20100920
  Receipt Date: 20100914
  Transmission Date: 20110219
  Serious: Yes (Life-Threatening, Other)
  Sender: FDA-Public Use
  Company Number: GB-ELI_LILLY_AND_COMPANY-GB201009003202

PATIENT
  Age: 66 Year
  Sex: Male

DRUGS (16)
  1. BYETTA [Suspect]
     Indication: DIABETES MELLITUS
     Dosage: 5 UG, 2/D
     Route: 058
     Dates: start: 20090814, end: 20090913
  2. BYETTA [Suspect]
     Dosage: 10 UG, 2/D
     Route: 058
     Dates: start: 20090913, end: 20100811
  3. GLICLAZIDE [Concomitant]
     Indication: DIABETES MELLITUS
     Dosage: 160 MG, 2/D
     Route: 048
     Dates: start: 20080101
  4. LANTUS [Concomitant]
     Route: 058
     Dates: start: 20100610
  5. METFORMIN [Concomitant]
     Dosage: 1 G, 2/D
     Route: 048
     Dates: start: 20080101
  6. ASPIRIN [Concomitant]
  7. ATORVASTATIN [Concomitant]
  8. BISOPROLOL [Concomitant]
  9. BUMETANIDE [Concomitant]
  10. DIGOXIN [Concomitant]
  11. FEXOFENADINE HCL [Concomitant]
  12. FLUTICASONE PROPIONATE [Concomitant]
  13. FORMOTEROL FUMARATE [Concomitant]
  14. LISINOPRIL [Concomitant]
  15. QVAR 40 [Concomitant]
  16. SPIRONOLACTONE [Concomitant]

REACTIONS (2)
  - OFF LABEL USE [None]
  - PANCREATIC NEOPLASM [None]
